FAERS Safety Report 9632508 (Version 1)
Quarter: 2013Q4

REPORT INFORMATION
  Report Type: Spontaneous
  Country: GB (occurrence: GB)
  Receive Date: 20131018
  Receipt Date: 20131018
  Transmission Date: 20140711
  Serious: Yes (Disabling, Other)
  Sender: FDA-Public Use
  Company Number: GB-BRISTOL-MYERS SQUIBB COMPANY-19527944

PATIENT
  Age: 15 Year
  Sex: Female

DRUGS (3)
  1. ARIPIPRAZOLE [Suspect]
     Indication: AFFECTIVE DISORDER
     Route: 048
     Dates: start: 201303, end: 201306
  2. FLUOXETINE [Concomitant]
     Indication: ANXIETY
     Route: 048
     Dates: start: 201110
  3. FLUOXETINE [Concomitant]
     Indication: DEPRESSION
     Route: 048
     Dates: start: 201110

REACTIONS (4)
  - Impaired self-care [Unknown]
  - Mobility decreased [Unknown]
  - Tremor [Unknown]
  - Gait disturbance [Unknown]
